FAERS Safety Report 8070849-5 (Version None)
Quarter: 2012Q1

REPORT INFORMATION
  Report Type: 
  Country: None (occurrence: None)
  Receive Date: 20120125
  Receipt Date: 20120120
  Transmission Date: 20120608
  Serious: Yes (Hospitalization)
  Sender: FDA-Public Use
  Company Number: FR-GLAXOSMITHKLINE-B0776478A

PATIENT
  Sex: Female

DRUGS (7)
  1. AUGMENTIN '125' [Suspect]
     Indication: UPPER RESPIRATORY TRACT INFECTION
     Route: 042
     Dates: start: 20111208, end: 20111209
  2. LAMOTRIGINE [Suspect]
     Indication: BIPOLAR DISORDER
     Route: 048
     Dates: start: 20111128, end: 20111212
  3. QUETIAPINE [Concomitant]
     Indication: BIPOLAR DISORDER
     Dosage: 300MG PER DAY
     Route: 048
     Dates: start: 20111206
  4. VENLAFAXINE [Concomitant]
     Indication: DEPRESSION
     Dosage: 225MG PER DAY
     Route: 048
     Dates: start: 20111115, end: 20111215
  5. LOXAPINE HCL [Concomitant]
     Indication: BIPOLAR DISORDER
     Dosage: 20DROP PER DAY
     Route: 048
     Dates: start: 20111117, end: 20111215
  6. TRANXENE [Concomitant]
     Indication: ANXIETY
     Dosage: 10MG THREE TIMES PER DAY
     Route: 048
     Dates: start: 20111124
  7. ZOPICLONE [Concomitant]
     Route: 048
     Dates: start: 20111114, end: 20111215

REACTIONS (3)
  - RASH MACULO-PAPULAR [None]
  - PYREXIA [None]
  - HEPATOCELLULAR INJURY [None]
